FAERS Safety Report 8792096 (Version 1)
Quarter: 2012Q4

REPORT INFORMATION
  Report Type: 
  Country: US (occurrence: US)
  Receive Date: 20120918
  Receipt Date: 20120918
  Transmission Date: 20130627
  Serious: Yes (Other)
  Sender: FDA-Public Use
  Company Number: US-BAYER-2012-096470

PATIENT
  Age: 54 Year
  Sex: Female
  Weight: 82 kg

DRUGS (9)
  1. BAYER CHEWABLE LOW DOSE BABY ASPIRIN TABLET ORANGE [Suspect]
     Indication: ISCHAEMIC HEART DISEASE PROPHYLAXIS
     Route: 048
  2. ALKA-SELTZER PLUS COLD [Suspect]
     Indication: NASOPHARYNGITIS
     Dosage: 2 DF, Q4HR
     Route: 048
     Dates: start: 20120822, end: 20120830
  3. SERTRALINE [Concomitant]
  4. HYDROCHLOROTHIAZIDE [Concomitant]
  5. SIMVASTATIN [Concomitant]
  6. DOCUSATE [Concomitant]
  7. GABAPENTIN [Concomitant]
  8. ONDANSETRON [Concomitant]
  9. HYDROXYZINE [Concomitant]

REACTIONS (1)
  - Blood pressure increased [Unknown]
